FAERS Safety Report 25852665 (Version 1)
Quarter: 2025Q3

REPORT INFORMATION
  Report Type: Spontaneous
  Country: EU (occurrence: EU)
  Receive Date: 20250926
  Receipt Date: 20250926
  Transmission Date: 20251021
  Serious: Yes (Life-Threatening, Hospitalization, Other)
  Sender: RANBAXY
  Company Number: EU-SUN PHARMACEUTICAL INDUSTRIES LTD-2025R1-528926

PATIENT
  Age: 38 Year
  Sex: Female

DRUGS (3)
  1. EPINEPHRINE [Suspect]
     Active Substance: EPINEPHRINE
     Indication: Cardiac disorder
     Route: 065
  2. NOREPINEPHRINE BITARTRATE [Suspect]
     Active Substance: NOREPINEPHRINE BITARTRATE
     Indication: Cardiac disorder
     Route: 065
  3. MILRINONE [Suspect]
     Active Substance: MILRINONE
     Indication: Cardiac disorder
     Route: 065

REACTIONS (5)
  - Right ventricular failure [Recovering/Resolving]
  - Acute kidney injury [Recovering/Resolving]
  - Tricuspid valve incompetence [Recovered/Resolved]
  - Atelectasis [Unknown]
  - Acute respiratory distress syndrome [Unknown]
